FAERS Safety Report 5612161-7 (Version None)
Quarter: 2008Q1

REPORT INFORMATION
  Report Type: 
  Country: None (occurrence: None)
  Receive Date: 20080131
  Receipt Date: 20080131
  Transmission Date: 20080703
  Serious: Yes (Hospitalization)
  Sender: FDA-Public Use
  Company Number: None

PATIENT
  Age: 87 Year
  Sex: Female
  Weight: 65.318 kg

DRUGS (2)
  1. BENZOCAINE [Suspect]
     Indication: ECHOCARDIOGRAM
     Dates: start: 20080128, end: 20080128
  2. BENZOCAINE [Suspect]
     Indication: PREOPERATIVE CARE
     Dates: start: 20080128, end: 20080128

REACTIONS (1)
  - METHAEMOGLOBINAEMIA [None]
